FAERS Safety Report 5962694-9 (Version None)
Quarter: 2008Q4

REPORT INFORMATION
  Report Type: 
  Country: None (occurrence: None)
  Receive Date: 20081124
  Receipt Date: 20081119
  Transmission Date: 20090506
  Serious: Yes (Other)
  Sender: FDA-Public Use
  Company Number: BR-JNJFOC-20081104938

PATIENT
  Age: 34 Year
  Sex: Female
  Weight: 77 kg

DRUGS (2)
  1. HALDOL [Suspect]
     Indication: NERVOUSNESS
     Route: 048
  2. AMYTRIPTYLINE [Concomitant]
     Indication: DEPRESSION
     Route: 065

REACTIONS (5)
  - FACIAL PALSY [None]
  - HEADACHE [None]
  - MUSCLE RIGIDITY [None]
  - PAIN [None]
  - PAIN IN EXTREMITY [None]
